FAERS Safety Report 8800428 (Version 1)
Quarter: 2012Q4

REPORT INFORMATION
  Report Type: 
  Country: US (occurrence: US)
  Receive Date: 20120921
  Receipt Date: 20120921
  Transmission Date: 20130627
  Serious: Yes (Other)
  Sender: FDA-Public Use
  Company Number: CHPA2012US019878

PATIENT
  Age: 81 Year
  Sex: Male

DRUGS (2)
  1. MAALOX ANTACID WITH ANTI-GAS [Suspect]
     Indication: GASTROOESOPHAGEAL REFLUX DISEASE
     Dosage: 1 swallow, PRN
     Route: 048
  2. PREVACID [Concomitant]
     Indication: GASTROOESOPHAGEAL REFLUX DISEASE
     Dosage: 30 mg, QPM
     Route: 048

REACTIONS (3)
  - Hypertension [Recovered/Resolved]
  - Off label use [Unknown]
  - Incorrect dose administered [Unknown]
